FAERS Safety Report 6446267-X (Version None)
Quarter: 2009Q4

REPORT INFORMATION
  Report Type: 
  Country: None (occurrence: None)
  Receive Date: 20091119
  Receipt Date: 20091026
  Transmission Date: 20100525
  Serious: No
  Sender: FDA-Public Use
  Company Number: JP-ROCHE-666488

PATIENT
  Age: 42 Year
  Sex: Male

DRUGS (2)
  1. TAMIFLU [Suspect]
     Indication: DRUG USE FOR UNKNOWN INDICATION
     Route: 048
  2. TAMIFLU [Suspect]
     Route: 048
     Dates: start: 20091026, end: 20091026

REACTIONS (2)
  - ACCIDENTAL OVERDOSE [None]
  - NO ADVERSE EVENT [None]
